FAERS Safety Report 8018724-6 (Version None)
Quarter: 2012Q1

REPORT INFORMATION
  Report Type: 
  Country: None (occurrence: None)
  Receive Date: 20120103
  Receipt Date: 20111229
  Transmission Date: 20120608
  Serious: Yes (Death, Hospitalization)
  Sender: FDA-Public Use
  Company Number: JP-SANOFI-AVENTIS-2011SA074854

PATIENT
  Sex: Male
  Weight: 55 kg

DRUGS (21)
  1. OXALIPLATIN [Suspect]
     Indication: COLON CANCER
     Route: 041
     Dates: start: 20110825
  2. XELODA [Suspect]
     Route: 048
     Dates: start: 20110915, end: 20110929
  3. KYTRIL [Concomitant]
     Indication: PREMEDICATION
     Route: 041
     Dates: start: 20110825, end: 20111006
  4. DEXTROSE [Concomitant]
     Route: 041
     Dates: start: 20111013, end: 20111014
  5. XELODA [Suspect]
     Route: 048
     Dates: start: 20111006, end: 20111012
  6. DEXAMETHASONE SODIUM PHOSPHATE [Concomitant]
     Indication: PREMEDICATION
     Route: 041
     Dates: start: 20110825, end: 20111006
  7. BUMINATE [Concomitant]
     Indication: HYPOALBUMINAEMIA
     Route: 041
     Dates: start: 20111014, end: 20111014
  8. HIRUDOID [Concomitant]
     Indication: PROPHYLAXIS
     Dates: start: 20110825
  9. SODIUM BICARBONATE [Concomitant]
     Indication: METABOLIC ACIDOSIS
     Route: 041
     Dates: start: 20111013, end: 20111013
  10. DOPAMINE HCL [Concomitant]
     Indication: CIRCULATORY COLLAPSE
     Route: 041
     Dates: start: 20111013, end: 20111014
  11. OXALIPLATIN [Suspect]
     Route: 041
     Dates: start: 20110915
  12. OXALIPLATIN [Suspect]
     Route: 041
     Dates: start: 20111006, end: 20111006
  13. DEXTROSE [Concomitant]
     Route: 041
     Dates: start: 20111014, end: 20111014
  14. NOREPINEPHRINE BITARTRATE [Concomitant]
     Indication: CIRCULATORY COLLAPSE
     Route: 041
     Dates: start: 20111014, end: 20111014
  15. LASIX [Concomitant]
     Indication: ANURIA
     Route: 041
     Dates: start: 20111013, end: 20111013
  16. ANTITHROMBOTIC AGENTS [Concomitant]
     Indication: DISSEMINATED INTRAVASCULAR COAGULATION
     Route: 041
     Dates: start: 20111014, end: 20111014
  17. HUMULIN R [Concomitant]
     Indication: RENAL FAILURE ACUTE
     Route: 041
     Dates: start: 20111014, end: 20111014
  18. PYDOXAL [Concomitant]
     Indication: PROPHYLAXIS
     Route: 048
     Dates: start: 20110825
  19. FUROSEMIDE [Concomitant]
     Indication: RENAL FAILURE
     Route: 042
     Dates: start: 20111013, end: 20111014
  20. XELODA [Suspect]
     Indication: COLON CANCER
     Route: 048
     Dates: start: 20110825, end: 20110908
  21. CALCIUM CARBONATE [Concomitant]
     Indication: RENAL FAILURE ACUTE
     Route: 042
     Dates: start: 20111014, end: 20111014

REACTIONS (2)
  - RHABDOMYOLYSIS [None]
  - DEHYDRATION [None]
